FAERS Safety Report 8773710 (Version 2)
Quarter: 2012Q4

REPORT INFORMATION
  Report Type: 
  Country: US (occurrence: US)
  Receive Date: 20120907
  Receipt Date: 20121018
  Transmission Date: 20130627
  Serious: Yes (Other)
  Sender: FDA-Public Use
  Company Number: US-ASTRAZENECA-2012SE65736

PATIENT
  Age: 77 Year
  Sex: Female

DRUGS (1)
  1. SYMBICORT PMDI [Suspect]
     Indication: EMPHYSEMA
     Route: 055

REACTIONS (3)
  - Pneumonia [Unknown]
  - Haemorrhagic stroke [Unknown]
  - Subarachnoid haemorrhage [Unknown]
